FAERS Safety Report 6856376-9 (Version None)
Quarter: 2010Q3

REPORT INFORMATION
  Report Type: 
  Country: None (occurrence: None)
  Receive Date: 20100719
  Receipt Date: 20100706
  Transmission Date: 20110219
  Serious: Yes (Congenital Anomaly, Other)
  Sender: FDA-Public Use
  Company Number: IT-JNJFOC-20100704647

PATIENT

DRUGS (2)
  1. HALOPERIDOL [Suspect]
     Indication: DRUG EXPOSURE DURING PREGNANCY
     Route: 064
  2. UNKNOWN MEDICATION [Concomitant]
     Route: 065

REACTIONS (1)
  - CYSTIC LYMPHANGIOMA [None]
